FAERS Safety Report 25038986 (Version 1)
Quarter: 2025Q1

REPORT INFORMATION
  Report Type: Spontaneous
  Country: CN (occurrence: CN)
  Receive Date: 20250305
  Receipt Date: 20250305
  Transmission Date: 20250409
  Serious: Yes (Other)
  Sender: ABBVIE
  Company Number: CN-PFIZER INC-PV202500024291

PATIENT

DRUGS (1)
  1. AVIBACTAM SODIUM [Suspect]
     Active Substance: AVIBACTAM SODIUM
     Indication: Central nervous system infection
     Route: 065

REACTIONS (3)
  - Clostridium difficile colitis [Unknown]
  - Off label use [Unknown]
  - Drug effective for unapproved indication [Unknown]
